FAERS Safety Report 16171043 (Version 2)
Quarter: 2019Q2

REPORT INFORMATION
  Report Type: Spontaneous
  Country: RU (occurrence: RU)
  Receive Date: 20190408
  Receipt Date: 20190426
  Transmission Date: 20190711
  Serious: Yes (Other)
  Sender: FDA-Public Use
  Company Number: RU-PURACAP PHARMACEUTICAL LLC-2019EPC00091

PATIENT
  Age: 58 Year

DRUGS (11)
  1. RAMIPRIL. [Concomitant]
     Active Substance: RAMIPRIL
     Dosage: 5-10 MG
     Route: 065
  2. EPLERENONE. [Concomitant]
     Active Substance: EPLERENONE
     Dosage: 25-50 MG
     Route: 065
  3. MELOXICAM. [Suspect]
     Active Substance: MELOXICAM
     Dosage: 15 MG, 1X/DAY
     Route: 030
     Dates: start: 201706
  4. BISOPROLOL [Concomitant]
     Active Substance: BISOPROLOL
     Dosage: 5-10 MG
     Route: 065
  5. CLOPIDOGREL [Concomitant]
     Active Substance: CLOPIDOGREL BISULFATE
     Dosage: 75 MG
     Route: 065
  6. ROSUVASTATIN. [Concomitant]
     Active Substance: ROSUVASTATIN
     Dosage: 20 MG
     Route: 065
  7. ACETYLSALICYLIC ACID [Concomitant]
     Active Substance: ASPIRIN
     Dosage: 100 MG
     Route: 065
  8. MYDOCALM [Concomitant]
     Dosage: 450 MG, 1X/DAY
     Route: 065
  9. MELOXICAM. [Suspect]
     Active Substance: MELOXICAM
     Dosage: 15 MG PILLS
     Route: 065
  10. KETOPROFEN. [Suspect]
     Active Substance: KETOPROFEN
     Dosage: 100 MG, 1X/DAY
     Route: 042
     Dates: start: 201706, end: 20171012
  11. MELOXICAM. [Suspect]
     Active Substance: MELOXICAM
     Dosage: TOOK OCCASIONALLY ON HIS OWN UNK
     Route: 065
     Dates: end: 20171012

REACTIONS (1)
  - Left ventricular dysfunction [Recovered/Resolved]
